FAERS Safety Report 15900484 (Version 6)
Quarter: 2019Q2

REPORT INFORMATION
  Report Type: Report from Study
  Country: US (occurrence: US)
  Receive Date: 20190201
  Receipt Date: 20190605
  Transmission Date: 20190711
  Serious: Yes (Death, Hospitalization)
  Sender: FDA-Public Use
  Company Number: US-EISAI MEDICAL RESEARCH-EC-2019-051133

PATIENT
  Age: 59 Year
  Sex: Female
  Weight: 92.71 kg

DRUGS (15)
  1. METFORMIN [Concomitant]
     Active Substance: METFORMIN HYDROCHLORIDE
  2. OMEPRAZOLE. [Concomitant]
     Active Substance: OMEPRAZOLE
  3. DOCUSATE SODIUM. [Concomitant]
     Active Substance: DOCUSATE SODIUM
  4. IBUPROFEN. [Concomitant]
     Active Substance: IBUPROFEN
  5. OXYCODONE [Concomitant]
     Active Substance: OXYCODONE
  6. ONDANSETRON [Concomitant]
     Active Substance: ONDANSETRON
  7. OXYCONTIN [Concomitant]
     Active Substance: OXYCODONE HYDROCHLORIDE
  8. POLYETHYLENE GLYCOL [Concomitant]
     Active Substance: POLYETHYLENE GLYCOLS
  9. LENVATINIB [Suspect]
     Active Substance: LENVATINIB
     Indication: UTERINE CANCER
     Route: 048
     Dates: start: 20170622, end: 20171117
  10. LENVATINIB [Suspect]
     Active Substance: LENVATINIB
     Route: 048
     Dates: start: 20180405, end: 20190123
  11. PEMBROLIZUMAB. [Suspect]
     Active Substance: PEMBROLIZUMAB
     Indication: UTERINE CANCER
     Route: 041
     Dates: start: 20170622, end: 20190103
  12. ALBUTEROL/IPRATROPIUM [Concomitant]
     Active Substance: ALBUTEROL\IPRATROPIUM
  13. LENVATINIB [Suspect]
     Active Substance: LENVATINIB
     Route: 048
     Dates: start: 20171130, end: 20180326
  14. ALPRAZOLAM. [Concomitant]
     Active Substance: ALPRAZOLAM
  15. MELATONIN [Concomitant]
     Active Substance: MELATONIN

REACTIONS (3)
  - Abdominal pain [Recovering/Resolving]
  - Pancreatitis acute [Not Recovered/Not Resolved]
  - Malignant neoplasm progression [Fatal]

NARRATIVE: CASE EVENT DATE: 20190124
